FAERS Safety Report 7553107-4 (Version None)
Quarter: 2011Q2

REPORT INFORMATION
  Report Type: 
  Country: None (occurrence: None)
  Receive Date: 20110616
  Receipt Date: 20091122
  Transmission Date: 20111010
  Serious: Yes (Death, Hospitalization, Other)
  Sender: FDA-Public Use
  Company Number: US-BAYER-200939738NA

PATIENT
  Age: 56 Year
  Sex: Male
  Weight: 101 kg

DRUGS (9)
  1. HESPAN IN EXCEL PLASTIC CONTAINER [Concomitant]
     Dosage: 500 ML, UNK
     Route: 042
     Dates: start: 20000111, end: 20000111
  2. PLASMA [Concomitant]
     Dosage: 3 U, UNK
     Route: 042
     Dates: start: 20000111, end: 20000111
  3. ATORVASTATIN [Concomitant]
     Dosage: UNK
     Route: 048
     Dates: end: 20000111
  4. HEPARIN [Concomitant]
     Dosage: 10000 U, UNK
     Route: 042
     Dates: start: 20000111, end: 20000111
  5. TRASYLOL [Suspect]
     Indication: CORONARY ARTERY BYPASS
     Dosage: 1 ML, UNK, TEST DOSE
     Route: 042
     Dates: start: 20000111, end: 20000111
  6. TRASYLOL [Suspect]
     Dosage: 200 ML, UNK, PRIME
     Route: 042
     Dates: start: 20000111, end: 20000111
  7. TRASYLOL [Suspect]
     Dosage: 50 ML, Q1HR
     Route: 042
     Dates: start: 20000111, end: 20000111
  8. MANNITOL [Concomitant]
     Dosage: 120 UNK, UNK
     Route: 042
     Dates: start: 20000111, end: 20000111
  9. RED BLOOD CELLS [Concomitant]
     Dosage: 1 U, UNK
     Route: 042
     Dates: start: 20000111, end: 20000111

REACTIONS (13)
  - RENAL FAILURE [None]
  - EMOTIONAL DISTRESS [None]
  - STRESS [None]
  - ANHEDONIA [None]
  - INJURY [None]
  - MULTI-ORGAN FAILURE [None]
  - UNEVALUABLE EVENT [None]
  - FEAR [None]
  - DEATH [None]
  - RENAL IMPAIRMENT [None]
  - ANXIETY [None]
  - RENAL INJURY [None]
  - PAIN [None]
